FAERS Safety Report 6986139-5 (Version None)
Quarter: 2010Q3

REPORT INFORMATION
  Report Type: 
  Country: None (occurrence: None)
  Receive Date: 20100915
  Receipt Date: 20090605
  Transmission Date: 20110219
  Serious: No
  Sender: FDA-Public Use
  Company Number: US-WYE-H09640309

PATIENT
  Age: 31 Year
  Sex: Male

DRUGS (1)
  1. PRISTIQ [Suspect]

REACTIONS (1)
  - BLOOD URINE PRESENT [None]
